FAERS Safety Report 12911153 (Version 2)
Quarter: 2017Q1

REPORT INFORMATION
  Report Type: Spontaneous
  Country: NL (occurrence: NL)
  Receive Date: 20161104
  Receipt Date: 20170323
  Transmission Date: 20170428
  Serious: Yes (Death, Hospitalization, Other)
  Sender: FDA-Public Use
  Company Number: NL-ASTRAZENECA-2015SE77001

PATIENT
  Age: 30172 Day
  Sex: Male

DRUGS (2)
  1. ZOLADEX [Suspect]
     Active Substance: GOSERELIN ACETATE
     Indication: PROSTATE CANCER
     Dosage: 10.8MG UNKNOWN
     Route: 058
     Dates: start: 20130626, end: 20161227
  2. INSULIN [Concomitant]
     Active Substance: INSULIN NOS

REACTIONS (9)
  - Secretion discharge [Unknown]
  - Blood urine present [Recovered/Resolved]
  - Fatigue [Recovering/Resolving]
  - Tremor [Unknown]
  - Bone cancer [Unknown]
  - Cystitis [Unknown]
  - Pollakiuria [Unknown]
  - Death [Fatal]
  - Lung neoplasm malignant [Unknown]

NARRATIVE: CASE EVENT DATE: 201603
